FAERS Safety Report 8606769 (Version 2)
Quarter: 2013Q3

REPORT INFORMATION
  Report Type: Spontaneous
  Country: US (occurrence: US)
  Receive Date: 20120611
  Receipt Date: 20130725
  Transmission Date: 20140515
  Serious: Yes (Hospitalization, Other)
  Sender: FDA-Public Use
  Company Number: US-ASTRAZENECA-2012SE35450

PATIENT
  Age: 56 Year
  Sex: Female

DRUGS (6)
  1. NEXIUM [Suspect]
     Indication: GASTROOESOPHAGEAL REFLUX DISEASE
     Route: 048
     Dates: start: 1998
  2. NEXIUM [Suspect]
     Indication: VOMITING
     Route: 048
     Dates: start: 1998
  3. PRILOSEC [Suspect]
     Route: 048
  4. ROLAIDS [Concomitant]
  5. MYLANTA [Concomitant]
     Indication: ABDOMINAL DISCOMFORT
  6. ESTROGEN [Concomitant]

REACTIONS (19)
  - Transient ischaemic attack [Unknown]
  - Gallbladder disorder [Unknown]
  - Breast cancer female [Unknown]
  - Hiatus hernia [Unknown]
  - Rotator cuff syndrome [Unknown]
  - Femur fracture [Unknown]
  - Lymphoma [Unknown]
  - Osteoporosis [Unknown]
  - Foot fracture [Unknown]
  - Humerus fracture [Unknown]
  - Scapula fracture [Unknown]
  - Clavicle fracture [Unknown]
  - Spinal compression fracture [Unknown]
  - Intervertebral disc degeneration [Unknown]
  - Angina pectoris [Unknown]
  - Arthritis [Unknown]
  - Cataract [Unknown]
  - Ligament rupture [Unknown]
  - Depression [Unknown]
